FAERS Safety Report 7869305-6 (Version None)
Quarter: 2011Q4

REPORT INFORMATION
  Report Type: 
  Country: None (occurrence: None)
  Receive Date: 20111021
  Receipt Date: 20111014
  Transmission Date: 20120403
  Serious: Yes (Other)
  Sender: FDA-Public Use
  Company Number: 2011SP043561

PATIENT
  Age: 30 Week
  Sex: Female

DRUGS (1)
  1. NUVARING [Suspect]
     Indication: MATERNAL DRUGS AFFECTING FOETUS
     Dosage: TRPL
     Route: 064

REACTIONS (3)
  - OVARIAN CYST [None]
  - ULTRASOUND ANTENATAL SCREEN ABNORMAL [None]
  - MATERNAL DRUGS AFFECTING FOETUS [None]
